FAERS Safety Report 12908338 (Version 2)
Quarter: 2016Q4

REPORT INFORMATION
  Report Type: Spontaneous
  Country: PL (occurrence: PL)
  Receive Date: 20161103
  Receipt Date: 20161117
  Transmission Date: 20170207
  Serious: Yes (Hospitalization)
  Sender: FDA-Public Use
  Company Number: PHHY2016PL149726

PATIENT
  Age: 69 Year
  Sex: Female

DRUGS (4)
  1. HEPARIN [Suspect]
     Active Substance: HEPARIN SODIUM
     Indication: DEEP VEIN THROMBOSIS
     Route: 065
  2. CIPROFLOXACINE [Suspect]
     Active Substance: CIPROFLOXACIN
     Indication: DEEP VEIN THROMBOSIS
     Route: 065
  3. RIVAROXABAN [Suspect]
     Active Substance: RIVAROXABAN
     Indication: DEEP VEIN THROMBOSIS
     Route: 065
  4. ACETYLSALICYLIC ACID [Suspect]
     Active Substance: ASPIRIN
     Indication: DEEP VEIN THROMBOSIS
     Route: 065

REACTIONS (5)
  - Condition aggravated [Recovering/Resolving]
  - Clostridium difficile infection [Recovering/Resolving]
  - Pancytopenia [Recovering/Resolving]
  - Leukopenia [Recovering/Resolving]
  - Asthenia [Recovering/Resolving]
